FAERS Safety Report 8286470-X (Version None)
Quarter: 2012Q2

REPORT INFORMATION
  Report Type: 
  Country: None (occurrence: None)
  Receive Date: 20120416
  Receipt Date: 20120412
  Transmission Date: 20120825
  Serious: Yes (Other)
  Sender: FDA-Public Use
  Company Number: US-PFIZER INC-2012091794

PATIENT
  Sex: Female
  Weight: 94.331 kg

DRUGS (4)
  1. DOXEPIN [Concomitant]
     Indication: SLEEP DISORDER
     Dosage: UNK
  2. GEODON [Suspect]
     Indication: EATING DISORDER
     Dosage: 120 MG, 1X/DAY
     Route: 048
  3. GEODON [Suspect]
     Indication: MALAISE
  4. KLONOPIN [Concomitant]
     Indication: EATING DISORDER
     Dosage: UNK

REACTIONS (1)
  - HYPOACUSIS [None]
